FAERS Safety Report 6492076-5 (Version None)
Quarter: 2009Q4

REPORT INFORMATION
  Report Type: 
  Country: None (occurrence: None)
  Receive Date: 20091125
  Receipt Date: 20090615
  Transmission Date: 20100525
  Serious: Yes (Hospitalization)
  Sender: FDA-Public Use
  Company Number: 2009BH009979

PATIENT
  Age: 77 Year
  Sex: Male

DRUGS (14)
  1. DIANEAL [Suspect]
     Indication: PERITONEAL DIALYSIS
     Dosage: 10 L; EVERY DAY; IP
     Route: 033
     Dates: start: 20080101
  2. IMDUR [Concomitant]
  3. COREG [Concomitant]
  4. LANTUS [Concomitant]
  5. ZEMPLAR [Concomitant]
  6. ATORVASTATIN CALCIUM [Concomitant]
  7. LASIX [Concomitant]
  8. POTASSIUM CHLORIDE [Concomitant]
  9. HUMALOG [Concomitant]
  10. RENAGEL [Concomitant]
  11. FOLIC ACID [Concomitant]
  12. PLAVIX [Concomitant]
  13. TRICOR [Concomitant]
  14. ASPIRIN [Concomitant]

REACTIONS (2)
  - PERITONEAL DIALYSIS COMPLICATION [None]
  - PERITONITIS [None]
